FAERS Safety Report 24977492 (Version 1)
Quarter: 2025Q1

REPORT INFORMATION
  Report Type: Spontaneous
  Country: BR (occurrence: BR)
  Receive Date: 20250217
  Receipt Date: 20250217
  Transmission Date: 20250409
  Serious: Yes (Hospitalization, Other)
  Sender: JOHNSON AND JOHNSON
  Company Number: BR-JNJFOC-20250221960

PATIENT
  Sex: Female

DRUGS (3)
  1. UPTRAVI [Suspect]
     Active Substance: SELEXIPAG
     Indication: Product used for unknown indication
     Route: 048
  2. BOSENTAN [Concomitant]
     Active Substance: BOSENTAN
  3. Sidenafila [Concomitant]

REACTIONS (4)
  - Cardiopulmonary failure [Unknown]
  - Lung operation [Unknown]
  - Intensive care [Unknown]
  - Vertigo [Unknown]
